FAERS Safety Report 4982145-0 (Version None)
Quarter: 2006Q2

REPORT INFORMATION
  Report Type: 
  Country: None (occurrence: None)
  Receive Date: 20060425
  Receipt Date: 20051114
  Transmission Date: 20061013
  Serious: Yes (Hospitalization)
  Sender: FDA-Public Use
  Company Number: US-MERCK-0511USA02528

PATIENT
  Age: 65 Year
  Sex: Male
  Weight: 100 kg

DRUGS (19)
  1. VIAGRA [Concomitant]
     Route: 065
  2. ANDROGEL [Concomitant]
     Route: 065
  3. VIOXX [Suspect]
     Indication: GOUT
     Route: 048
     Dates: start: 20001219, end: 20030312
  4. VIOXX [Suspect]
     Indication: JOINT SPRAIN
     Route: 048
     Dates: start: 20001219, end: 20030312
  5. KLONOPIN [Concomitant]
     Route: 065
  6. PROPOXYPHENE HYDROCHLORIDE [Concomitant]
     Route: 065
  7. OXYCODONE [Concomitant]
     Route: 065
  8. TRIAZOLAM [Concomitant]
     Route: 065
  9. PREDNISONE [Concomitant]
     Route: 065
  10. CYCLOBENZAPRINE HYDROCHLORIDE [Concomitant]
     Route: 065
  11. PLAVIX [Concomitant]
     Route: 065
  12. ALBUTEROL [Concomitant]
     Route: 065
  13. LIPITOR [Concomitant]
     Route: 065
  14. NEXIUM [Concomitant]
     Route: 065
  15. PRILOSEC [Concomitant]
     Route: 065
  16. ZANTAC [Concomitant]
     Route: 065
  17. ZYLOPRIM [Concomitant]
     Route: 065
  18. ROXICET [Concomitant]
     Route: 065
  19. HYDROCODONE HYDROCHLORIDE [Concomitant]
     Route: 065

REACTIONS (7)
  - ANGINA PECTORIS [None]
  - ARTERIOSCLEROSIS [None]
  - ARTHROPATHY [None]
  - BLOOD CHOLESTEROL INCREASED [None]
  - CEREBROVASCULAR ACCIDENT [None]
  - DEPRESSION [None]
  - OESOPHAGEAL SPASM [None]
